FAERS Safety Report 9425505 (Version 1)
Quarter: 2013Q3

REPORT INFORMATION
  Report Type: Spontaneous
  Country: US (occurrence: US)
  Receive Date: 20130729
  Receipt Date: 20130729
  Transmission Date: 20140515
  Serious: No
  Sender: FDA-Public Use
  Company Number: US-MYLANLABS-2012S1011426

PATIENT
  Age: 70 Year
  Sex: Female
  Weight: 83.92 kg

DRUGS (8)
  1. LEVOTHYROXINE SODIUM [Suspect]
     Indication: HYPOTHYROIDISM
     Route: 048
     Dates: start: 20120326
  2. HERBAL ANTIOXIDANT /05780701/ [Concomitant]
  3. METOPROLOL [Concomitant]
  4. LISINOPRIL [Concomitant]
  5. JANUVIA [Concomitant]
  6. PLAVIX [Concomitant]
  7. XANAX [Concomitant]
  8. ANTICOAG [Concomitant]

REACTIONS (12)
  - Dyspnoea [Recovered/Resolved]
  - Malaise [Recovered/Resolved]
  - Decreased appetite [Recovered/Resolved]
  - Abdominal pain upper [Recovered/Resolved]
  - Headache [Recovered/Resolved]
  - Weight decreased [Recovered/Resolved]
  - Chest pain [Recovered/Resolved]
  - Nervousness [Recovered/Resolved]
  - Tremor [Recovered/Resolved]
  - Feeling abnormal [Recovered/Resolved]
  - Breast atrophy [Recovered/Resolved]
  - Wheezing [Recovered/Resolved]
